FAERS Safety Report 18501930 (Version 1)
Quarter: 2020Q4

REPORT INFORMATION
  Report Type: Spontaneous
  Country: NL (occurrence: NL)
  Receive Date: 20201113
  Receipt Date: 20201113
  Transmission Date: 20210114
  Serious: Yes (Other)
  Sender: FDA-Public Use
  Company Number: NL-TEVA-2020-NL-1847711

PATIENT
  Sex: Female
  Weight: 51 kg

DRUGS (1)
  1. MICONAZOL VAGINAALCREME 20MG/G / GYNO MICONAZOL NITRAAT TEVA VAGINAALC [Suspect]
     Active Substance: MICONAZOLE
     Indication: VULVOVAGINAL MYCOTIC INFECTION
     Dosage: 1 DOSAGE FORMS DAILY; 1X PER DAY 1 APPLICATOR INTERNALLY:THERAPY END DATE :ASKED BUT UNKNOWN
     Dates: start: 20200911

REACTIONS (2)
  - Abortion spontaneous [Unknown]
  - Maternal exposure during pregnancy [Unknown]
